FAERS Safety Report 20802603 (Version 1)
Quarter: 2022Q2

REPORT INFORMATION
  Report Type: Spontaneous
  Country: US (occurrence: None)
  Receive Date: 20220509
  Receipt Date: 20220509
  Transmission Date: 20220721
  Serious: Yes (Life-Threatening, Hospitalization)
  Sender: FDA-Public Use
  Company Number: None

PATIENT
  Age: 86 Year
  Sex: Male
  Weight: 72.57 kg

DRUGS (2)
  1. IOHEXOL [Suspect]
     Active Substance: IOHEXOL
     Indication: X-ray with contrast
     Dosage: FREQUENCY : ONCE;?
     Route: 042
     Dates: start: 20220301, end: 20220301
  2. CEFTRIAXONE [Suspect]
     Active Substance: CEFTRIAXONE
     Indication: Surgery
     Dosage: FREQUENCY : ONCE;?
     Route: 042
     Dates: start: 20220301, end: 20220301

REACTIONS (1)
  - Angioedema [None]

NARRATIVE: CASE EVENT DATE: 20220302
